FAERS Safety Report 9463918 (Version 1)
Quarter: 2013Q3

REPORT INFORMATION
  Report Type: Spontaneous
  Country: CN (occurrence: CN)
  Receive Date: 20130819
  Receipt Date: 20130819
  Transmission Date: 20140515
  Serious: Yes (Other)
  Sender: FDA-Public Use
  Company Number: CN-JNJFOC-20130803813

PATIENT
  Sex: Female

DRUGS (7)
  1. DOXORUBICIN [Suspect]
     Indication: BREAST CANCER
     Dosage: 6 CYCLES
     Route: 042
  2. DOXORUBICIN [Suspect]
     Indication: BREAST CANCER
     Dosage: 4 CYCLES
     Route: 042
  3. CYCLOPHOSPHAMIDE [Suspect]
     Indication: BREAST CANCER
     Dosage: 4 CYCLES
     Route: 065
  4. CYCLOPHOSPHAMIDE [Suspect]
     Indication: BREAST CANCER
     Dosage: 6 CYCLES
     Route: 065
  5. PACLITAXEL [Suspect]
     Indication: BREAST CANCER
     Dosage: 4 CYCLES
     Route: 065
  6. LEUPROLIDE ACETATE [Suspect]
     Indication: BREAST CANCER
     Route: 065
  7. TAMOXIFEN [Suspect]
     Indication: BREAST CANCER
     Route: 065

REACTIONS (7)
  - Premature menopause [Unknown]
  - Anaemia [Unknown]
  - Leukopenia [Unknown]
  - Neutropenia [Unknown]
  - Nausea [Unknown]
  - Alopecia [Unknown]
  - Fatigue [Unknown]
